FAERS Safety Report 25710144 (Version 3)
Quarter: 2025Q4

REPORT INFORMATION
  Report Type: Spontaneous
  Country: US (occurrence: US)
  Receive Date: 20250821
  Receipt Date: 20251202
  Transmission Date: 20260117
  Serious: Yes (Other)
  Sender: ROCHE
  Company Number: US-ROCHE-10000364561

PATIENT
  Sex: Female
  Weight: 102.51 kg

DRUGS (7)
  1. XOLAIR [Suspect]
     Active Substance: OMALIZUMAB
     Indication: Idiopathic urticaria
     Dosage: STRENGTH: 300MG/2ML
     Route: 058
     Dates: start: 202507
  2. XOLAIR [Suspect]
     Active Substance: OMALIZUMAB
     Indication: Urticaria
  3. XOLAIR [Suspect]
     Active Substance: OMALIZUMAB
     Indication: Food allergy
  4. XOLAIR [Suspect]
     Active Substance: OMALIZUMAB
     Indication: Urticaria chronic
     Route: 058
     Dates: start: 20250507
  5. XOLAIR [Suspect]
     Active Substance: OMALIZUMAB
     Indication: Urticaria
  6. XOLAIR [Suspect]
     Active Substance: OMALIZUMAB
     Indication: Food allergy
  7. TOPIRAMATE [Concomitant]
     Active Substance: TOPIRAMATE

REACTIONS (7)
  - Somnolence [Unknown]
  - Alopecia [Unknown]
  - Mast cell activation syndrome [Unknown]
  - Thyroid disorder [Unknown]
  - Allergic oedema [Unknown]
  - Urticaria [Unknown]
  - Off label use [Unknown]
